FAERS Safety Report 7621578-0 (Version None)
Quarter: 2011Q3

REPORT INFORMATION
  Report Type: 
  Country: None (occurrence: None)
  Receive Date: 20110719
  Receipt Date: 20110706
  Transmission Date: 20111222
  Serious: Yes (Hospitalization)
  Sender: FDA-Public Use
  Company Number: US-US-EMD SERONO, INC.-7015474

PATIENT
  Sex: Male

DRUGS (3)
  1. IBUPROFEN (ADVIL) [Concomitant]
     Indication: PREMEDICATION
  2. REBIF [Suspect]
     Indication: MULTIPLE SCLEROSIS
     Route: 058
     Dates: start: 20100410
  3. TRAZODONE HCL [Concomitant]

REACTIONS (5)
  - DEPRESSION [None]
  - MUSCULAR WEAKNESS [None]
  - MUSCLE SPASMS [None]
  - SUICIDAL IDEATION [None]
  - INFLUENZA LIKE ILLNESS [None]
